FAERS Safety Report 8098666-0 (Version None)
Quarter: 2012Q1

REPORT INFORMATION
  Report Type: 
  Country: None (occurrence: None)
  Receive Date: 20120129
  Receipt Date: 20111024
  Transmission Date: 20120608
  Serious: No
  Sender: FDA-Public Use
  Company Number: US-ABBOTT-11P-163-0868980-00

PATIENT
  Sex: Female

DRUGS (14)
  1. CLONIDINE [Concomitant]
     Indication: HYPERTENSION
  2. TRAMADOL HCL [Concomitant]
     Indication: RHEUMATOID ARTHRITIS
  3. ALBUTEROL [Concomitant]
     Indication: CHRONIC OBSTRUCTIVE PULMONARY DISEASE
  4. MOBIC [Concomitant]
     Indication: SYSTEMIC LUPUS ERYTHEMATOSUS
  5. AMBIEN [Concomitant]
     Indication: INSOMNIA
  6. METFORMIN HCL [Concomitant]
     Indication: DIABETES MELLITUS
  7. HUMIRA [Suspect]
     Indication: ANKYLOSING SPONDYLITIS
     Route: 058
     Dates: start: 20090101, end: 20110801
  8. LASIX [Concomitant]
     Indication: HYPERTENSION
  9. METOPROLOL TARTRATE [Concomitant]
     Indication: HYPERTENSION
  10. VOLTAREN [Concomitant]
     Indication: ARTHRALGIA
     Dosage: GEL
  11. TRAMADOL HCL [Concomitant]
     Indication: SYSTEMIC LUPUS ERYTHEMATOSUS
  12. COZAAR [Concomitant]
     Indication: HYPERTENSION
  13. HUMIRA [Suspect]
     Route: 058
     Dates: start: 20110801
  14. BUSPAR [Concomitant]
     Indication: ANXIETY

REACTIONS (4)
  - DIABETES MELLITUS [None]
  - GAIT DISTURBANCE [None]
  - PAIN [None]
  - EXOSTOSIS [None]
